FAERS Safety Report 18000105 (Version 1)
Quarter: 2020Q3

REPORT INFORMATION
  Report Type: Spontaneous
  Country: CN (occurrence: CN)
  Receive Date: 20200709
  Receipt Date: 20200709
  Transmission Date: 20201103
  Serious: Yes (Hospitalization)
  Sender: FDA-Public Use
  Company Number: CN-TERSERA THERAPEUTICS LLC-2020TRS001916

PATIENT

DRUGS (2)
  1. ARIMIDEX [Suspect]
     Active Substance: ANASTROZOLE
     Indication: BREAST CANCER FEMALE
     Dosage: 1 MG, QD
     Route: 048
     Dates: start: 20170620
  2. ZOLADEX [Suspect]
     Active Substance: GOSERELIN ACETATE
     Indication: BREAST CANCER FEMALE
     Dosage: 3.6 MG, EVERY 4 WEEKS (EVERY 28 DAYS)
     Route: 058
     Dates: start: 20170620

REACTIONS (1)
  - Liver injury [Recovering/Resolving]

NARRATIVE: CASE EVENT DATE: 20200610
